FAERS Safety Report 25660912 (Version 1)
Quarter: 2025Q3

REPORT INFORMATION
  Report Type: Spontaneous
  Country: US (occurrence: US)
  Receive Date: 20250808
  Receipt Date: 20250808
  Transmission Date: 20251020
  Serious: No
  Sender: AMGEN
  Company Number: US-AMGEN-USASP2025154597

PATIENT
  Age: 70 Year
  Sex: Male
  Weight: 79.3 kg

DRUGS (11)
  1. TEPEZZA [Suspect]
     Active Substance: TEPROTUMUMAB-TRBW
     Indication: Product used for unknown indication
     Dosage: 800 MILLIGRAM, Q3WK (10MG/KG, FIRST INFUSION)
     Route: 040
     Dates: start: 20210702
  2. TEPEZZA [Suspect]
     Active Substance: TEPROTUMUMAB-TRBW
     Dosage: 1600 MILLIGRAM, Q3WK (20MG/KG, SECOND INFUSION)
     Route: 040
     Dates: start: 20210723
  3. TEPEZZA [Suspect]
     Active Substance: TEPROTUMUMAB-TRBW
     Dosage: 1580 MILLIGRAM, Q3WK (20MG/KG, THIRD INFUSION)
     Route: 040
     Dates: start: 20210813
  4. TEPEZZA [Suspect]
     Active Substance: TEPROTUMUMAB-TRBW
     Dosage: 1560 MILLIGRAM, Q3WK (20MG/KG, FOURTH INFUSION)
     Route: 040
     Dates: start: 20210903
  5. TEPEZZA [Suspect]
     Active Substance: TEPROTUMUMAB-TRBW
     Dosage: 1580 MILLIGRAM, Q3WK (20MG/KG, FIFTH INFUSION)
     Route: 040
     Dates: start: 20211009
  6. TEPEZZA [Suspect]
     Active Substance: TEPROTUMUMAB-TRBW
     Dosage: 1580 MILLIGRAM, Q3WK (20MG/KG, SIXTH INFUSION)
     Route: 040
     Dates: start: 20211106
  7. TEPEZZA [Suspect]
     Active Substance: TEPROTUMUMAB-TRBW
     Dosage: 1596 MILLIGRAM, Q3WK (20MG/KG, SEVENTH INFUSION)
     Route: 040
     Dates: start: 20211204
  8. TEPEZZA [Suspect]
     Active Substance: TEPROTUMUMAB-TRBW
     Dosage: 1580 MILLIGRAM, Q3WK (20MG/KG, EIGHTH INFUSION)
     Route: 040
     Dates: start: 20220211
  9. TEPEZZA [Suspect]
     Active Substance: TEPROTUMUMAB-TRBW
     Dosage: 1580 MILLIGRAM, Q3WK (20MG/KG, EIGHTH INFUSION)
     Route: 040
     Dates: start: 20220211
  10. WATER FOR INJECTION [Concomitant]
     Active Substance: WATER
  11. SODIUM CHLORIDE [Concomitant]
     Active Substance: SODIUM CHLORIDE

REACTIONS (3)
  - Muscle spasms [Not Recovered/Not Resolved]
  - Onychoclasis [Not Recovered/Not Resolved]
  - Hypoacusis [Not Recovered/Not Resolved]

NARRATIVE: CASE EVENT DATE: 20210101
